FAERS Safety Report 9775622 (Version 1)
Quarter: 2013Q4

REPORT INFORMATION
  Report Type: Spontaneous
  Country: JP (occurrence: JP)
  Receive Date: 20131220
  Receipt Date: 20131220
  Transmission Date: 20140711
  Serious: Yes (Death)
  Sender: FDA-Public Use
  Company Number: JP-MALLINCKRODT-T201305162

PATIENT
  Age: 45 Year
  Sex: Female

DRUGS (5)
  1. METHADONE [Suspect]
     Indication: CANCER PAIN
     Dosage: 20 MG, (60 MG DAILY DOSE)
     Route: 048
     Dates: start: 20130719, end: 20130905
  2. METHADONE [Suspect]
     Dosage: 15 MG, (45 MG DAILY DOSE)
     Route: 048
     Dates: start: 20130713, end: 20130718
  3. MORPHINE HYDROCHLORIDE [Concomitant]
     Dosage: 10 MG, PRN
     Route: 058
  4. CYMBALTA [Concomitant]
     Dosage: 20 MG, UNK
     Route: 048
     Dates: start: 20130713, end: 20130905
  5. ZYPREXA [Concomitant]
     Dosage: 2.5 MG, UNK
     Route: 048
     Dates: start: 20130713, end: 20130905

REACTIONS (1)
  - Colon cancer [Fatal]
